FAERS Safety Report 19719663 (Version 1)
Quarter: 2021Q3

REPORT INFORMATION
  Report Type: Spontaneous
  Country: US (occurrence: US)
  Receive Date: 20210819
  Receipt Date: 20210819
  Transmission Date: 20211014
  Serious: No
  Sender: FDA-Public Use
  Company Number: None

PATIENT
  Age: 54 Year
  Sex: Female
  Weight: 82 kg

DRUGS (7)
  1. DULAGLUTIDIE 1.5 MG INJ PEN [Concomitant]
  2. LISINOPRIL 10MG CAPSULE [Concomitant]
  3. IBUPROFEN 600MG TAB [Concomitant]
  4. DOXYCYCLINE 10MG CAPSULE Q12H [Concomitant]
  5. DAPAGLIFLOZIN?METFORMIN XR 5?1000MG [Concomitant]
  6. REGEN?COV [Suspect]
     Active Substance: CASIRIVIMAB\IMDEVIMAB
     Indication: COVID-19
     Dosage: ?          OTHER FREQUENCY:ONCE;?
     Route: 041
     Dates: start: 20210818, end: 20210818
  7. ROSUVASTATIN 10MG CAPSULE [Concomitant]

REACTIONS (8)
  - Pruritus [None]
  - Hypotension [None]
  - Mean arterial pressure decreased [None]
  - Oxygen saturation decreased [None]
  - Anaphylactic reaction [None]
  - Dizziness [None]
  - Urticaria [None]
  - Fatigue [None]

NARRATIVE: CASE EVENT DATE: 20210818
